FAERS Safety Report 6150600-6 (Version None)
Quarter: 2009Q2

REPORT INFORMATION
  Report Type: 
  Country: None (occurrence: None)
  Receive Date: 20090409
  Receipt Date: 20090325
  Transmission Date: 20091009
  Serious: Yes (Hospitalization)
  Sender: FDA-Public Use
  Company Number: GB-GENENTECH-277886

PATIENT
  Sex: Female

DRUGS (10)
  1. BEVACIZUMAB [Suspect]
     Indication: BREAST CANCER
     Dosage: 15 MG/M2, Q3W
     Route: 042
     Dates: start: 20080915
  2. FLUOROURACIL [Suspect]
     Indication: BREAST CANCER
     Dosage: 900 MG, UNK
     Route: 065
     Dates: start: 20081006, end: 20081006
  3. EPIRUBICIN [Suspect]
     Indication: BREAST CANCER
     Dosage: 190 MG, UNK
     Route: 065
     Dates: start: 20081006, end: 20081006
  4. CYCLOPHOSPHAMIDE [Suspect]
     Indication: BREAST CANCER
     Dosage: 900 MG, UNK
     Route: 065
     Dates: start: 20081006, end: 20081006
  5. DOCETAXEL [Suspect]
     Indication: BREAST CANCER
     Dosage: 185 MG, Q3W
     Route: 042
     Dates: start: 20081117
  6. DICLOFENAC [Concomitant]
     Indication: DRUG USE FOR UNKNOWN INDICATION
     Dosage: UNK
  7. CO-DYDRAMOL [Concomitant]
     Indication: DRUG USE FOR UNKNOWN INDICATION
     Dosage: UNK
  8. DEXAMETHASONE 4MG TAB [Concomitant]
     Indication: DRUG USE FOR UNKNOWN INDICATION
     Dosage: UNK
     Dates: start: 20081006
  9. DOMPERIDONE [Concomitant]
     Indication: DRUG USE FOR UNKNOWN INDICATION
     Dosage: UNK
     Dates: start: 20081006
  10. BENDROFLUMETHIAZIDE [Concomitant]
     Indication: DRUG USE FOR UNKNOWN INDICATION
     Dosage: UNK

REACTIONS (3)
  - BLOOD PRESSURE DECREASED [None]
  - PYREXIA [None]
  - RESPIRATORY TRACT INFECTION [None]
